FAERS Safety Report 8236692-9 (Version None)
Quarter: 2012Q1

REPORT INFORMATION
  Report Type: 
  Country: None (occurrence: None)
  Receive Date: 20120326
  Receipt Date: 20120326
  Transmission Date: 20120608
  Serious: Yes (Hospitalization)
  Sender: FDA-Public Use
  Company Number: None

PATIENT
  Age: 48 Year
  Sex: Female
  Weight: 109.3 kg

DRUGS (16)
  1. VENTOLIN [Concomitant]
  2. CARBOPLATIN [Suspect]
     Indication: BREAST CANCER
     Dates: start: 20120302
  3. CARBOPLATIN [Suspect]
     Indication: BREAST CANCER
     Dates: start: 20120309
  4. VANCOMYCIN [Concomitant]
  5. ZOSYN PRN [Concomitant]
  6. TYLENOL [Concomitant]
  7. TRASTUZUMAB 4 MGKG [Suspect]
     Indication: BREAST CANCER
     Dosage: TRASTUZUMAB 438 MG IV QWK
     Route: 042
     Dates: start: 20120302
  8. TRASTUZUMAB 4 MGKG [Suspect]
     Indication: BREAST CANCER
     Dosage: TRASTUZUMAB 438 MG IV QWK
     Route: 042
     Dates: start: 20120309
  9. DECADRON [Concomitant]
  10. ONDANSETRON [Concomitant]
  11. PROCHLORPERASINE [Concomitant]
  12. DEXAMETHASONE [Concomitant]
  13. PROTONIX [Concomitant]
  14. ABRAXANE [Suspect]
     Indication: BREAST CANCER
     Dosage: ABRAXANE 213MG IV Q WEEK
     Route: 042
     Dates: start: 20120302
  15. ABRAXANE [Suspect]
     Indication: BREAST CANCER
     Dosage: ABRAXANE 213MG IV Q WEEK
     Route: 042
     Dates: start: 20120309
  16. AMBIEN [Concomitant]

REACTIONS (13)
  - PYREXIA [None]
  - MUSCULOSKELETAL STIFFNESS [None]
  - OROPHARYNGEAL PAIN [None]
  - CELLULITIS [None]
  - NECK PAIN [None]
  - JUGULAR VEIN THROMBOSIS [None]
  - DEEP VEIN THROMBOSIS [None]
  - INFLAMMATION [None]
  - NEURILEMMOMA [None]
  - MENINGIOMA [None]
  - DYSPHAGIA [None]
  - BRAIN MASS [None]
  - SOFT TISSUE MASS [None]
